FAERS Safety Report 7797661-6 (Version None)
Quarter: 2011Q4

REPORT INFORMATION
  Report Type: 
  Country: None (occurrence: None)
  Receive Date: 20111003
  Receipt Date: 20110921
  Transmission Date: 20120403
  Serious: Yes (Other)
  Sender: FDA-Public Use
  Company Number: DSA_46799_2011

PATIENT
  Age: 48 Year
  Sex: Female

DRUGS (1)
  1. BUPROPION HYDROCHLORIDE [Suspect]
     Indication: DEPRESSION
     Dosage: (150 MG DAILY)
     Dates: start: 20110428

REACTIONS (3)
  - FALL [None]
  - ROAD TRAFFIC ACCIDENT [None]
  - PETIT MAL EPILEPSY [None]
